FAERS Safety Report 18414535 (Version 1)
Quarter: 2020Q4

REPORT INFORMATION
  Report Type: Spontaneous
  Country: CN (occurrence: CN)
  Receive Date: 20201022
  Receipt Date: 20201022
  Transmission Date: 20210114
  Serious: Yes (Other)
  Sender: FDA-Public Use
  Company Number: CN-PFIZER INC-2020403660

PATIENT
  Age: 74 Year
  Sex: Male
  Weight: 58 kg

DRUGS (2)
  1. SULPERAZON [Suspect]
     Active Substance: CEFOPERAZONE SODIUM\SULBACTAM SODIUM
     Indication: URINARY TRACT INFECTION
     Dosage: 3 G, 2X/DAY
     Route: 041
     Dates: start: 20201006, end: 20201015
  2. LINEZOLID. [Suspect]
     Active Substance: LINEZOLID
     Indication: URINARY TRACT INFECTION
     Dosage: 600 MG, 2X/DAY
     Route: 041
     Dates: start: 20201010, end: 20201014

REACTIONS (1)
  - Epilepsy [Recovering/Resolving]

NARRATIVE: CASE EVENT DATE: 20201015
